FAERS Safety Report 6277670-9 (Version None)
Quarter: 2009Q3

REPORT INFORMATION
  Report Type: 
  Country: None (occurrence: None)
  Receive Date: 20090722
  Receipt Date: 20070822
  Transmission Date: 20100115
  Serious: Yes (Other)
  Sender: FDA-Public Use
  Company Number: US-ASTRAZENECA-2006UW08327

PATIENT
  Age: 39 Year
  Sex: Female
  Weight: 61.2 kg

DRUGS (12)
  1. SEROQUEL [Suspect]
     Indication: BIPOLAR DISORDER
     Route: 048
     Dates: start: 20000101, end: 20050101
  2. SEROQUEL [Suspect]
     Route: 048
     Dates: start: 20050913, end: 20050927
  3. BUSPAR [Concomitant]
     Route: 048
     Dates: start: 20040608
  4. TEGRETOL [Concomitant]
     Indication: BIPOLAR DISORDER
     Dosage: 200-500 MG
     Route: 048
     Dates: start: 20041012
  5. REMERON [Concomitant]
     Dosage: 15 - 25 MG
     Dates: start: 20050729
  6. VISTARIL [Concomitant]
     Indication: ANXIETY
     Route: 048
     Dates: start: 20000711
  7. PROZAC [Concomitant]
     Route: 048
     Dates: start: 20000711
  8. TRILEPTAL [Concomitant]
     Dosage: 600 - 1200 MG
     Route: 048
     Dates: start: 20040608
  9. AMBIEN [Concomitant]
     Dates: start: 20041012
  10. KLONOPIN [Concomitant]
     Route: 048
     Dates: start: 20050215
  11. NEURONTIN [Concomitant]
     Indication: NEUROPATHY PERIPHERAL
     Route: 048
     Dates: start: 20050220
  12. NEURONTIN [Concomitant]
     Indication: BIPOLAR DISORDER
     Route: 048
     Dates: start: 20050220

REACTIONS (3)
  - DIABETES MELLITUS [None]
  - NEUROPATHY PERIPHERAL [None]
  - TYPE 2 DIABETES MELLITUS [None]
